FAERS Safety Report 12197299 (Version 2)
Quarter: 2016Q2

REPORT INFORMATION
  Report Type: Spontaneous
  Country: US (occurrence: US)
  Receive Date: 20160321
  Receipt Date: 20160421
  Transmission Date: 20160815
  Serious: Yes (Hospitalization)
  Sender: FDA-Public Use
  Company Number: US-AMGEN-USASP2016033360

PATIENT
  Age: 78 Year
  Sex: Male

DRUGS (4)
  1. MIRCERA [Concomitant]
     Active Substance: METHOXY POLYETHYLENE GLYCOL-EPOETIN BETA
     Dosage: UNK
  2. EPOGEN [Suspect]
     Active Substance: ERYTHROPOIETIN
     Dosage: 15,000 UNITS, 3 TIMES/WK
     Route: 065
     Dates: start: 20151231
  3. EPOGEN [Suspect]
     Active Substance: ERYTHROPOIETIN
     Indication: CHRONIC KIDNEY DISEASE
     Dosage: UNK UNK, UNK
     Route: 042
  4. EPOGEN [Suspect]
     Active Substance: ERYTHROPOIETIN
     Dosage: 12,000 UNITS, 3 TIMES/WK
     Route: 065

REACTIONS (2)
  - Drug effect decreased [Unknown]
  - Haemoglobin abnormal [Unknown]
